FAERS Safety Report 13710599 (Version 1)
Quarter: 2017Q2

REPORT INFORMATION
  Report Type: Spontaneous
  Country: US (occurrence: US)
  Receive Date: 20170630
  Receipt Date: 20170630
  Transmission Date: 20170830
  Serious: No
  Sender: FDA-Public Use
  Company Number: None

PATIENT
  Age: 70 Year
  Sex: Female
  Weight: 76.5 kg

DRUGS (1)
  1. ZOLPIDEM [Suspect]
     Active Substance: ZOLPIDEM\ZOLPIDEM TARTRATE
     Indication: INSOMNIA
     Dosage: ?          OTHER STRENGTH:MG;QUANTITY:30 TABLET(S);?DAILY ORAL
     Route: 048
     Dates: start: 20170619

REACTIONS (3)
  - Product substitution issue [None]
  - Nervousness [None]
  - Drug ineffective [None]

NARRATIVE: CASE EVENT DATE: 20170619
